FAERS Safety Report 6748207-2 (Version None)
Quarter: 2010Q2

REPORT INFORMATION
  Report Type: 
  Country: None (occurrence: None)
  Receive Date: 20100601
  Receipt Date: 20100517
  Transmission Date: 20101027
  Serious: Yes (Other)
  Sender: FDA-Public Use
  Company Number: US-ASTRAZENECA-2007UW08363

PATIENT
  Age: 16887 Day
  Sex: Male
  Weight: 131.5 kg

DRUGS (7)
  1. SEROQUEL [Suspect]
     Dosage: 400-800 MG
     Route: 048
     Dates: start: 20060130
  2. SEROQUEL [Suspect]
     Route: 048
     Dates: start: 20080101
  3. AMLODIP/BENAZEP 5/20 [Concomitant]
  4. LITHIUM CARBONATE CAP [Concomitant]
  5. ATENOLOL [Concomitant]
     Dates: start: 20060101
  6. LUNESTA [Concomitant]
     Dates: start: 20060101
  7. PAXIL [Concomitant]
     Dosage: DAILY
     Dates: start: 20060101

REACTIONS (2)
  - DIABETES MELLITUS [None]
  - NEUROPATHY PERIPHERAL [None]
